FAERS Safety Report 15813107 (Version 2)
Quarter: 2019Q1

REPORT INFORMATION
  Report Type: Spontaneous
  Country: US (occurrence: US)
  Receive Date: 20190111
  Receipt Date: 20190114
  Transmission Date: 20190417
  Serious: No
  Sender: FDA-Public Use
  Company Number: US-PFIZER INC-2019014210

PATIENT
  Age: 34 Year
  Sex: Female

DRUGS (3)
  1. HYDROCORTISONE ACETATE. [Suspect]
     Active Substance: HYDROCORTISONE ACETATE
     Indication: EXFOLIATIVE RASH
     Dosage: UNK, 2X/DAY
     Route: 061
  2. TRIAMCINOLONE 0.1% [Suspect]
     Active Substance: TRIAMCINOLONE
     Indication: EXFOLIATIVE RASH
     Dosage: UNK
     Route: 061
  3. BETAMETHASONE. [Suspect]
     Active Substance: BETAMETHASONE
     Indication: EXFOLIATIVE RASH
     Dosage: UNK
     Route: 061

REACTIONS (1)
  - Prescription drug used without a prescription [Recovered/Resolved]
